FAERS Safety Report 5906717-1 (Version None)
Quarter: 2008Q3

REPORT INFORMATION
  Report Type: 
  Country: None (occurrence: None)
  Receive Date: 20080930
  Receipt Date: 20080924
  Transmission Date: 20090109
  Serious: Yes (Death)
  Sender: FDA-Public Use
  Company Number: 2008-03567

PATIENT
  Age: 64 Year
  Sex: Male
  Weight: 92 kg

DRUGS (5)
  1. VELCADE [Suspect]
     Indication: MULTIPLE MYELOMA
     Dosage: 2.7 MG
     Dates: start: 20080228, end: 20080506
  2. DEXAMETHASONE [Concomitant]
  3. ROCEPHIN [Concomitant]
  4. DOXORUBICIN HCL [Concomitant]
  5. RAMIPRIL [Concomitant]

REACTIONS (1)
  - DEATH [None]
